FAERS Safety Report 5257147-X (Version None)
Quarter: 2007Q1

REPORT INFORMATION
  Report Type: 
  Country: None (occurrence: None)
  Receive Date: 20070305
  Receipt Date: 20050504
  Transmission Date: 20070707
  Serious: Yes (Death)
  Sender: FDA-Public Use
  Company Number: DSA_29409_2007

PATIENT
  Age: 77 Year
  Sex: Male

DRUGS (22)
  1. DILTIAZEM [Suspect]
     Dosage: 60 MG BID
  2. METOCLOPRAMIDE [Suspect]
     Dosage: 10 MG TID
  3. DOTHIEPIN ^COX^ [Suspect]
     Dosage: 75 MG QHS
  4. SPIRONOLACTONE [Suspect]
     Dosage: 50 MG Q DAY
  5. SALBUTAMOL + IPRATROPIUM [Suspect]
     Indication: CHRONIC OBSTRUCTIVE PULMONARY DISEASE
     Dosage: 18 MCG Q DAY IH
     Route: 055
     Dates: start: 20030617, end: 20040513
  6. SPIRIVA [Suspect]
     Indication: CHRONIC OBSTRUCTIVE PULMONARY DISEASE
     Dosage: 18 MCG Q DAY IH
     Route: 055
     Dates: start: 20030617, end: 20040719
  7. ASPIRIN [Suspect]
     Dosage: 75 MG Q DAY
  8. ATORVASTATIN CALCIUM [Suspect]
     Dosage: 10 MG Q DAY
  9. BECLOMETHASONE DIPROPIONATE [Suspect]
     Dosage: 100 MCG BID
  10. FRUMIL [Suspect]
     Dosage: DF
  11. DEXAMETHASONE [Suspect]
     Dosage: 2 MG Q DAY
  12. FUROSEMIDE [Suspect]
     Dosage: 80 MG Q DAY
  13. GAVISCON /00237601/ [Suspect]
     Dosage: 10 ML QID
  14. LACTULOSE [Suspect]
     Dosage: DF Q DAY
  15. LANSOPRAZOLE [Suspect]
     Dosage: 30 MG QOD
  16. NITROLINGUAL [Suspect]
     Dosage: 400 MG Q DAY
  17. NOZINAN /00038601/ [Suspect]
     Dosage: 25 MG QID
  18. OXYCODONE HCL [Suspect]
     Dosage: 20 MG BID
  19. OXYGEN [Suspect]
     Dosage: DF
  20. SYMBICORT [Suspect]
     Dosage: 2 PUFF(S) BID IH
     Route: 055
  21. TEMAZEPAM [Suspect]
     Dosage: 10 MG
  22. SALBUTAMOL [Suspect]
     Indication: CHRONIC OBSTRUCTIVE PULMONARY DISEASE
     Dosage: 200 MCG PRN IH
     Route: 055

REACTIONS (1)
  - MESOTHELIOMA [None]
